FAERS Safety Report 16786324 (Version 1)
Quarter: 2019Q3

REPORT INFORMATION
  Report Type: Spontaneous
  Country: ES (occurrence: ES)
  Receive Date: 20190909
  Receipt Date: 20190909
  Transmission Date: 20191005
  Serious: Yes (Hospitalization, Other)
  Sender: FDA-Public Use
  Company Number: ES-PFIZER INC-2019382147

PATIENT
  Age: 66 Year
  Sex: Female

DRUGS (4)
  1. VINBLASTINE [Suspect]
     Active Substance: VINBLASTINE
     Dosage: UNK
     Dates: start: 20190409
  2. DOXORUBICIN HCL [Suspect]
     Active Substance: DOXORUBICIN HYDROCHLORIDE
     Dosage: UNK
     Dates: start: 20190409
  3. DACARBAZIN [Suspect]
     Active Substance: DACARBAZINE
     Dosage: UNK
     Dates: start: 20190409
  4. BLEOMYCIN [Suspect]
     Active Substance: BLEOMYCIN SULFATE
     Dosage: UNK
     Dates: start: 20190409

REACTIONS (1)
  - Febrile neutropenia [Recovered/Resolved]

NARRATIVE: CASE EVENT DATE: 20190608
